FAERS Safety Report 5234238-0 (Version None)
Quarter: 2007Q1

REPORT INFORMATION
  Report Type: 
  Country: None (occurrence: None)
  Receive Date: 20070209
  Receipt Date: 20070130
  Transmission Date: 20070707
  Serious: Yes (Other)
  Sender: FDA-Public Use
  Company Number: DE-JNJFOC-20061200545

PATIENT
  Age: 57 Year
  Sex: Male

DRUGS (15)
  1. REMICADE [Suspect]
     Route: 042
  2. REMICADE [Suspect]
     Route: 042
  3. REMICADE [Suspect]
     Route: 042
  4. REMICADE [Suspect]
     Route: 042
  5. REMICADE [Suspect]
     Route: 042
  6. REMICADE [Suspect]
     Route: 042
  7. REMICADE [Suspect]
     Route: 042
  8. REMICADE [Suspect]
     Route: 042
  9. REMICADE [Suspect]
     Route: 042
  10. REMICADE [Suspect]
     Route: 042
  11. REMICADE [Suspect]
     Indication: RHEUMATOID ARTHRITIS
     Route: 042
  12. DECORTIN [Concomitant]
     Route: 065
  13. RANTUDIL [Concomitant]
     Route: 065
  14. CELLUFRESH [Concomitant]
     Route: 065
  15. LEFLUNOMIDE [Concomitant]
     Route: 065

REACTIONS (3)
  - BURSITIS [None]
  - IMPAIRED HEALING [None]
  - STAPHYLOCOCCAL INFECTION [None]
